FAERS Safety Report 22127075 (Version 1)
Quarter: 2023Q1

REPORT INFORMATION
  Report Type: Spontaneous
  Country: US (occurrence: US)
  Receive Date: 20230322
  Receipt Date: 20230322
  Transmission Date: 20230418
  Serious: No
  Sender: FDA-Public Use
  Company Number: US-KARYOPHARM-2023KPT000098

PATIENT

DRUGS (6)
  1. XPOVIO [Suspect]
     Active Substance: SELINEXOR
     Indication: Plasma cell myeloma
     Dosage: 100 MG, WEEKLY
     Route: 048
     Dates: start: 20221214, end: 2023
  2. XPOVIO [Suspect]
     Active Substance: SELINEXOR
     Dosage: 60 MG, WEEKLY
     Route: 048
     Dates: start: 2023
  3. VELCADE [Concomitant]
     Active Substance: BORTEZOMIB
  4. ONDANSETRON [Concomitant]
     Active Substance: ONDANSETRON
  5. OLANZAPINE [Concomitant]
     Active Substance: OLANZAPINE
  6. VALACYCLOVIR HYDROCHLORIDE [Concomitant]
     Active Substance: VALACYCLOVIR HYDROCHLORIDE

REACTIONS (10)
  - Daydreaming [Unknown]
  - Ear congestion [Unknown]
  - Hyperacusis [Unknown]
  - Abdominal distension [Unknown]
  - Neuropathy peripheral [Unknown]
  - Fall [Unknown]
  - Muscular weakness [Unknown]
  - Constipation [Unknown]
  - Nausea [Unknown]
  - Diarrhoea [Unknown]

NARRATIVE: CASE EVENT DATE: 20221201
